FAERS Safety Report 11183644 (Version 1)
Quarter: 2015Q2

REPORT INFORMATION
  Report Type: Spontaneous
  Country: US (occurrence: None)
  Receive Date: 20150610
  Receipt Date: 20150610
  Transmission Date: 20150821
  Serious: Yes (Other)
  Sender: FDA-Public Use
  Company Number: None

PATIENT
  Age: 73 Year
  Sex: Female
  Weight: 65.32 kg

DRUGS (4)
  1. MONTELUKAST 10 MG [Suspect]
     Active Substance: MONTELUKAST SODIUM
     Indication: HYPERSENSITIVITY
     Route: 048
     Dates: start: 20130609, end: 20150609
  2. MONTELUKAST 10 MG [Suspect]
     Active Substance: MONTELUKAST SODIUM
     Indication: ASTHMA
     Route: 048
     Dates: start: 20130609, end: 20150609
  3. SINGULAIR [Concomitant]
     Active Substance: MONTELUKAST SODIUM
  4. MONTELUKAST 10 MG [Suspect]
     Active Substance: MONTELUKAST SODIUM
     Indication: DRUG INEFFECTIVE
     Route: 048
     Dates: start: 20130609, end: 20150609

REACTIONS (1)
  - Drug ineffective [None]

NARRATIVE: CASE EVENT DATE: 20150604
